FAERS Safety Report 8460091-8 (Version None)
Quarter: 2012Q2

REPORT INFORMATION
  Report Type: 
  Country: None (occurrence: None)
  Receive Date: 20120622
  Receipt Date: 20120612
  Transmission Date: 20120825
  Serious: Yes (Other)
  Sender: FDA-Public Use
  Company Number: US-ELI_LILLY_AND_COMPANY-US201206004866

PATIENT

DRUGS (4)
  1. PRENATAL VITAMINS                  /01549301/ [Concomitant]
     Route: 064
  2. SYNTHROID [Concomitant]
     Dosage: UNK, UNKNOWN
     Route: 064
  3. HUMULIN N [Suspect]
     Dosage: UNK, UNKNOWN
     Route: 064
  4. HUMULIN R [Suspect]
     Dosage: UNK, UNKNOWN
     Route: 064

REACTIONS (2)
  - FOETAL EXPOSURE DURING PREGNANCY [None]
  - AMNIOTIC FLUID VOLUME DECREASED [None]
